FAERS Safety Report 7961582-6 (Version None)
Quarter: 2011Q4

REPORT INFORMATION
  Report Type: 
  Country: None (occurrence: None)
  Receive Date: 20111202
  Receipt Date: 20111202
  Transmission Date: 20120403
  Serious: Yes (Life-Threatening)
  Sender: FDA-Public Use
  Company Number: None

PATIENT
  Sex: Male

DRUGS (2)
  1. OXCARBAZEPINE [Suspect]
     Indication: EPILEPSY
     Dosage: 6 TAB DAILY PO
     Route: 048
  2. OXCARBAZEPINE [Suspect]
     Indication: EPILEPSY
     Dosage: 1/2 TAB ONCE A DAY PO
     Route: 048

REACTIONS (2)
  - CONVULSION [None]
  - PRODUCT SUBSTITUTION ISSUE [None]
